FAERS Safety Report 7655640-3 (Version None)
Quarter: 2011Q3

REPORT INFORMATION
  Report Type: 
  Country: None (occurrence: None)
  Receive Date: 20110729
  Receipt Date: 20110719
  Transmission Date: 20111222
  Serious: Yes (Other)
  Sender: FDA-Public Use
  Company Number: 2009S1006354

PATIENT
  Age: 53 Year
  Sex: Female
  Weight: 92.5338 kg

DRUGS (11)
  1. FLEXERIL [Concomitant]
  2. AVAPRO [Concomitant]
  3. TOPROL-XL [Concomitant]
  4. LOVASTATIN [Concomitant]
  5. PEPCID [Concomitant]
  6. HYDROCHLOROTHIAZID [Concomitant]
  7. CLONAZEPAM [Concomitant]
  8. SODIUM PHOSPHATE MONOBASIC MONOHYDRATE AND NAPO4 DIBASIC ANHYDROUS [Suspect]
     Indication: BOWEL PREPARATION
     Dosage: 45 ML;X1;PO
     Route: 048
     Dates: start: 20060608, end: 20060608
  9. SODIUM PHOSPHATE MONOBASIC MONOHYDRATE AND NAPO4 DIBASIC ANHYDROUS [Suspect]
     Indication: BOWEL PREPARATION
     Dosage: 45 ML;X1;PO
     Route: 048
     Dates: start: 20060607, end: 20060607
  10. VICODIN [Concomitant]
  11. PROMETHAZINE [Concomitant]

REACTIONS (16)
  - ABDOMINAL PAIN LOWER [None]
  - DIARRHOEA [None]
  - WEIGHT DECREASED [None]
  - RENAL FAILURE ACUTE [None]
  - RENAL CYST [None]
  - MICTURITION URGENCY [None]
  - DEHYDRATION [None]
  - DYSPNOEA [None]
  - VOMITING [None]
  - URINARY INCONTINENCE [None]
  - DYSPEPSIA [None]
  - CONSTIPATION [None]
  - ANAEMIA [None]
  - FEMALE GENITAL TRACT FISTULA [None]
  - DIVERTICULITIS [None]
  - RENAL FAILURE CHRONIC [None]
